FAERS Safety Report 19040544 (Version 2)
Quarter: 2021Q2

REPORT INFORMATION
  Report Type: Spontaneous
  Country: JP (occurrence: JP)
  Receive Date: 20210323
  Receipt Date: 20210413
  Transmission Date: 20210717
  Serious: Yes (Death)
  Sender: FDA-Public Use
  Company Number: JP-MTPC-MTPC2021-0007291

PATIENT
  Age: 83 Year
  Sex: Female

DRUGS (1)
  1. RADICUT BAG FOR I.V. INFUSION 30MG [Suspect]
     Active Substance: EDARAVONE
     Indication: AMYOTROPHIC LATERAL SCLEROSIS
     Route: 041

REACTIONS (1)
  - Death [Fatal]
